FAERS Safety Report 4442629-0 (Version None)
Quarter: 2004Q3

REPORT INFORMATION
  Report Type: 
  Country: None (occurrence: None)
  Receive Date: 20040903
  Receipt Date: 20040506
  Transmission Date: 20050211
  Serious: Yes (Other)
  Sender: FDA-Public Use
  Company Number: 2004UW09813

PATIENT
  Age: 72 Year
  Sex: Female

DRUGS (2)
  1. CRESTOR [Suspect]
     Dosage: 10 MG DIALY PO
     Route: 048
     Dates: start: 20040401
  2. LEXAPRO [Suspect]
     Indication: DEPRESSION
     Dates: start: 20040401

REACTIONS (3)
  - HYPERSENSITIVITY [None]
  - RASH MACULO-PAPULAR [None]
  - SKIN DESQUAMATION [None]
